FAERS Safety Report 17821511 (Version 2)
Quarter: 2020Q2

REPORT INFORMATION
  Report Type: Report from Study
  Country: CA (occurrence: CA)
  Receive Date: 20200525
  Receipt Date: 20200608
  Transmission Date: 20200714
  Serious: Yes (Hospitalization, Other)
  Sender: FDA-Public Use
  Company Number: PHHY2017CA036975

PATIENT
  Age: 68 Year
  Sex: Male

DRUGS (1)
  1. SANDOSTATIN LAR DEPOT [Suspect]
     Active Substance: OCTREOTIDE ACETATE
     Indication: NEUROENDOCRINE TUMOUR
     Dosage: 20 MG, QMO
     Route: 030
     Dates: start: 20131206, end: 20200520

REACTIONS (3)
  - Malignant neoplasm progression [Unknown]
  - Influenza [Unknown]
  - Blood pressure increased [Unknown]

NARRATIVE: CASE EVENT DATE: 20171212
